FAERS Safety Report 9514537 (Version 2)
Quarter: 2013Q3

REPORT INFORMATION
  Report Type: Report from Study
  Country: TW (occurrence: TW)
  Receive Date: 20130911
  Receipt Date: 20130911
  Transmission Date: 20140515
  Serious: Yes (Hospitalization)
  Sender: FDA-Public Use
  Company Number: TW-BRISTOL-MYERS SQUIBB COMPANY-16288326

PATIENT
  Age: 55 Year
  Sex: Male

DRUGS (3)
  1. ABILIFY TABS [Suspect]
     Indication: SCHIZOPHRENIA
     Dosage: 22AUG-01DEC11(102DAYS)?WITHDRAWN ON 06DEC2011
     Route: 048
     Dates: start: 20110822, end: 20111201
  2. HALCION [Concomitant]
     Dates: start: 20111102, end: 20111114
  3. BROTIZOLAM [Concomitant]
     Dates: start: 20111115, end: 20111201

REACTIONS (2)
  - Mental disorder [Recovered/Resolved]
  - Delusion [Recovered/Resolved]
